FAERS Safety Report 7744193-7 (Version None)
Quarter: 2011Q3

REPORT INFORMATION
  Report Type: 
  Country: None (occurrence: None)
  Receive Date: 20110912
  Receipt Date: 20110902
  Transmission Date: 20111222
  Serious: Yes (Other)
  Sender: FDA-Public Use
  Company Number: CN-ASTRAZENECA-2011SE52841

PATIENT
  Age: 60 Year
  Sex: Female

DRUGS (1)
  1. GEFITINIB [Suspect]
     Indication: NON-SMALL CELL LUNG CANCER
     Dosage: 15 OF 250 MG TABLETS
     Route: 048
     Dates: start: 20110902, end: 20110902

REACTIONS (2)
  - SUICIDAL IDEATION [None]
  - INCORRECT DOSE ADMINISTERED [None]
